FAERS Safety Report 9722731 (Version 1)
Quarter: 2013Q4

REPORT INFORMATION
  Report Type: Spontaneous
  Country: US (occurrence: US)
  Receive Date: 20131202
  Receipt Date: 20131202
  Transmission Date: 20140711
  Serious: Yes (Other)
  Sender: FDA-Public Use
  Company Number: US-PFIZER INC-2013343257

PATIENT
  Sex: Male

DRUGS (3)
  1. ROBITUSSIN COUGH AND CHEST CONGESTION DM MAX [Suspect]
     Indication: COUGH
     Dosage: 2 TEASPOONS ONCE
     Dates: start: 20131129, end: 20131129
  2. ROBITUSSIN COUGH AND CHEST CONGESTION DM MAX [Suspect]
     Indication: RESPIRATORY TRACT CONGESTION
  3. CARDURA [Suspect]
     Indication: HYPERTENSION
     Dosage: 4 MG, DAILY

REACTIONS (1)
  - Hypertension [Unknown]
